FAERS Safety Report 21262993 (Version 2)
Quarter: 2022Q3

REPORT INFORMATION
  Report Type: Other
  Country: US (occurrence: None)
  Receive Date: 20220828
  Receipt Date: 20220905
  Transmission Date: 20221026
  Serious: Yes (Other)
  Sender: FDA-Public Use
  Company Number: US-ROCHE-3166285

PATIENT
  Sex: Female
  Weight: 76.726 kg

DRUGS (5)
  1. OCREVUS [Suspect]
     Active Substance: OCRELIZUMAB
     Indication: Multiple sclerosis
     Route: 042
  2. BACLOFEN [Concomitant]
     Active Substance: BACLOFEN
  3. SIMVASTATIN [Concomitant]
     Active Substance: SIMVASTATIN
  4. ROPINIROLE [Concomitant]
     Active Substance: ROPINIROLE
  5. FAMOTIDINE [Concomitant]
     Active Substance: FAMOTIDINE

REACTIONS (8)
  - Drug ineffective [Unknown]
  - Vision blurred [Unknown]
  - Gait disturbance [Unknown]
  - Fall [Unknown]
  - Syncope [Unknown]
  - Gait disturbance [Unknown]
  - Drug hypersensitivity [Unknown]
  - Optic neuritis [Unknown]
